FAERS Safety Report 15374892 (Version 1)
Quarter: 2018Q3

REPORT INFORMATION
  Report Type: Spontaneous
  Country: US (occurrence: US)
  Receive Date: 20180906
  Receipt Date: 20180906
  Transmission Date: 20181010
  Serious: Yes (Other)
  Sender: FDA-Public Use
  Company Number: None

PATIENT

DRUGS (1)
  1. MRI WITH GADOLINIUM [Suspect]
     Active Substance: GADOLINIUM

REACTIONS (6)
  - Eye disorder [None]
  - Fatigue [None]
  - Dyspepsia [None]
  - Peripheral swelling [None]
  - Headache [None]
  - Contrast media reaction [None]
